FAERS Safety Report 6602939-5 (Version None)
Quarter: 2010Q1

REPORT INFORMATION
  Report Type: 
  Country: None (occurrence: None)
  Receive Date: 20100226
  Receipt Date: 20100217
  Transmission Date: 20100710
  Serious: Yes (Other)
  Sender: FDA-Public Use
  Company Number: US-JNJFOC-20100204763

PATIENT
  Sex: Female
  Weight: 52.16 kg

DRUGS (15)
  1. DURAGESIC-100 [Suspect]
     Indication: BACK PAIN
     Route: 062
  2. DURAGESIC-100 [Suspect]
     Route: 062
  3. DURAGESIC-100 [Suspect]
     Indication: PAIN
     Route: 062
  4. DURAGESIC-100 [Suspect]
     Route: 062
  5. DURAGESIC-100 [Suspect]
     Route: 062
  6. DURAGESIC-100 [Suspect]
     Route: 062
  7. DURAGESIC-100 [Suspect]
     Route: 062
  8. DURAGESIC-100 [Suspect]
     Route: 062
  9. FENTANYL CITRATE [Suspect]
     Indication: PAIN
     Route: 062
  10. FENTANYL CITRATE [Suspect]
     Route: 062
  11. ATIVAN [Concomitant]
     Indication: ANXIETY
     Route: 048
  12. ATIVAN [Concomitant]
     Route: 048
  13. PREVACID [Concomitant]
     Indication: HYPERCHLORHYDRIA
     Route: 048
  14. PREVACID [Concomitant]
     Indication: GASTROOESOPHAGEAL REFLUX DISEASE
     Route: 048
  15. XOPENEX [Concomitant]
     Indication: ASTHMA
     Route: 055

REACTIONS (8)
  - APPLICATION SITE RASH [None]
  - CARPAL TUNNEL SYNDROME [None]
  - DRUG DOSE OMISSION [None]
  - DRUG INEFFECTIVE [None]
  - DYSPNOEA [None]
  - INAPPROPRIATE SCHEDULE OF DRUG ADMINISTRATION [None]
  - THROAT TIGHTNESS [None]
  - WITHDRAWAL SYNDROME [None]
